FAERS Safety Report 17813399 (Version 3)
Quarter: 2020Q3

REPORT INFORMATION
  Report Type: Spontaneous
  Country: US (occurrence: US)
  Receive Date: 20200521
  Receipt Date: 20200821
  Transmission Date: 20201102
  Serious: Yes (Hospitalization, Other)
  Sender: FDA-Public Use
  Company Number: US-PFIZER INC-2020158147

PATIENT
  Age: 79 Year
  Sex: Female

DRUGS (1)
  1. IBRANCE [Suspect]
     Active Substance: PALBOCICLIB
     Indication: BREAST CANCER METASTATIC
     Dosage: 125 MG, UNK

REACTIONS (5)
  - Asthenia [Unknown]
  - Amnesia [Unknown]
  - Confusional state [Unknown]
  - Dementia Alzheimer^s type [Unknown]
  - Eating disorder [Unknown]
